FAERS Safety Report 5698212-2 (Version None)
Quarter: 2008Q2

REPORT INFORMATION
  Report Type: 
  Country: None (occurrence: None)
  Receive Date: 20080408
  Receipt Date: 20080325
  Transmission Date: 20081010
  Serious: Yes (Hospitalization)
  Sender: FDA-Public Use
  Company Number: US-ELI_LILLY_AND_COMPANY-US200803000654

PATIENT
  Sex: Female
  Weight: 101.59 kg

DRUGS (19)
  1. CYMBALTA [Suspect]
     Indication: PAIN
     Dosage: 60 MG, DAILY (1/D)
     Dates: start: 20070101, end: 20080201
  2. COUMADIN [Concomitant]
     Dosage: 5 MG, DAILY (1/D)
     Dates: start: 20030101
  3. LANTUS [Concomitant]
  4. INSULIN RAPID [Concomitant]
  5. CRESTOR [Concomitant]
  6. PREDNISONE [Concomitant]
  7. FUROSEMIDE [Concomitant]
  8. VITAMIN D [Concomitant]
  9. ASPIRIN [Concomitant]
  10. FLEXERIL [Concomitant]
  11. CELEBREX [Concomitant]
  12. ENALAPRIL MALEATE [Concomitant]
  13. METOTREXATO [Concomitant]
  14. DIGOXIN [Concomitant]
  15. METFORMIN HCL [Concomitant]
  16. OXYCODONE HCL [Concomitant]
  17. COREG [Concomitant]
  18. OMEPRAZOLE [Concomitant]
  19. SULFASALAZINE [Concomitant]

REACTIONS (3)
  - DRUG INTERACTION [None]
  - HAEMATOCHEZIA [None]
  - INTERNATIONAL NORMALISED RATIO INCREASED [None]
